FAERS Safety Report 8075391-3 (Version None)
Quarter: 2012Q1

REPORT INFORMATION
  Report Type: 
  Country: None (occurrence: None)
  Receive Date: 20120127
  Receipt Date: 20120119
  Transmission Date: 20120608
  Serious: Yes (Other)
  Sender: FDA-Public Use
  Company Number: US-BAYER-2011-058271

PATIENT
  Age: 33 Year
  Sex: Female
  Weight: 76 kg

DRUGS (4)
  1. FOLIC ACID [Concomitant]
     Indication: SUPPLEMENTATION THERAPY
     Dosage: 1 PILL
     Route: 048
     Dates: start: 20080704
  2. IBUPROFEN [Concomitant]
     Indication: PAIN
     Dosage: 2 PILLS
     Route: 048
     Dates: start: 20080704
  3. MULTI-VITAMIN [Concomitant]
     Indication: SUPPLEMENTATION THERAPY
     Dosage: 2 PILLS
     Route: 048
     Dates: start: 20080704
  4. YAZ [Suspect]
     Indication: CONTRACEPTION
     Dosage: UNK
     Dates: start: 20080301, end: 20080501

REACTIONS (6)
  - ILIAC VEIN OCCLUSION [None]
  - PAIN [None]
  - DEEP VEIN THROMBOSIS [None]
  - SCAR [None]
  - EMOTIONAL DISTRESS [None]
  - PELVIC VENOUS THROMBOSIS [None]
